FAERS Safety Report 4519445-4 (Version None)
Quarter: 2004Q4

REPORT INFORMATION
  Report Type: 
  Country: None (occurrence: None)
  Receive Date: 20041202
  Receipt Date: 20041119
  Transmission Date: 20050328
  Serious: Yes (Life-Threatening)
  Sender: FDA-Public Use
  Company Number: 2004224699JP

PATIENT
  Age: 69 Year
  Sex: Male
  Weight: 65 kg

DRUGS (2)
  1. IRINOTECAN HYDROCHLORIDE         (IRINOTECAN HYDROCHLORIDE) [Suspect]
     Indication: COLORECTAL CANCER RECURRENT
     Dosage: 60 MG (INTERMITTENT), INTRAVENOUS, (SEE IMAGE)
     Route: 042
     Dates: start: 20040427, end: 20040617
  2. IRINOTECAN HYDROCHLORIDE         (IRINOTECAN HYDROCHLORIDE) [Suspect]
     Indication: COLORECTAL CANCER RECURRENT
     Dosage: 60 MG (INTERMITTENT), INTRAVENOUS, (SEE IMAGE)
     Route: 042
     Dates: start: 20040624, end: 20040624

REACTIONS (5)
  - ALANINE AMINOTRANSFERASE INCREASED [None]
  - ASPARTATE AMINOTRANSFERASE INCREASED [None]
  - INTERSTITIAL LUNG DISEASE [None]
  - OCULOMUCOCUTANEOUS SYNDROME [None]
  - PNEUMOCYSTIS CARINII PNEUMONIA [None]
